FAERS Safety Report 6923979-2 (Version None)
Quarter: 2010Q3

REPORT INFORMATION
  Report Type: 
  Country: None (occurrence: None)
  Receive Date: 20100813
  Receipt Date: 20100803
  Transmission Date: 20110219
  Serious: Yes (Hospitalization)
  Sender: FDA-Public Use
  Company Number: US-ELI_LILLY_AND_COMPANY-US201008001859

PATIENT
  Sex: Female

DRUGS (8)
  1. FORTEO [Suspect]
     Dosage: 20 UG, DAILY (1/D)
  2. FORTEO [Suspect]
     Dosage: 20 UG, DAILY (1/D)
     Dates: start: 20100713
  3. PROGRAF [Concomitant]
  4. CELLCEPT [Concomitant]
  5. MAGNESIUM [Concomitant]
  6. CORTICOSTEROID NOS [Concomitant]
  7. PREDNISONE [Concomitant]
  8. SOLU-MEDROL [Concomitant]
     Route: 042

REACTIONS (5)
  - BONE DISORDER [None]
  - BONE PAIN [None]
  - DYSSTASIA [None]
  - FRACTURE [None]
  - LUNG DISORDER [None]
